FAERS Safety Report 17974878 (Version 1)
Quarter: 2020Q3

REPORT INFORMATION
  Report Type: Report from Study
  Country: US (occurrence: US)
  Receive Date: 20200702
  Receipt Date: 20200702
  Transmission Date: 20201103
  Serious: Yes (Hospitalization)
  Sender: FDA-Public Use
  Company Number: US-EISAI MEDICAL RESEARCH-EC-2018-046055

PATIENT
  Age: 61 Year
  Sex: Male
  Weight: 114.9 kg

DRUGS (19)
  1. YERVOY [Concomitant]
     Active Substance: IPILIMUMAB
  2. ARANESP [Concomitant]
     Active Substance: DARBEPOETIN ALFA
  3. LEXAPRO [Concomitant]
     Active Substance: ESCITALOPRAM OXALATE
  4. VITAMIN D3 [Concomitant]
     Active Substance: CHOLECALCIFEROL
  5. SODIUM BICARBONATE. [Concomitant]
     Active Substance: SODIUM BICARBONATE
  6. NOVOLOG [Concomitant]
     Active Substance: INSULIN ASPART
  7. METOPROLOL SUCCINATE. [Concomitant]
     Active Substance: METOPROLOL SUCCINATE
  8. IRON [Concomitant]
     Active Substance: IRON
  9. OMEPRAZOLE. [Concomitant]
     Active Substance: OMEPRAZOLE
  10. LENVIMA [Suspect]
     Active Substance: LENVATINIB
     Indication: RENAL CANCER
     Route: 048
     Dates: start: 201809
  11. HYSINGLA ER [Concomitant]
     Active Substance: HYDROCODONE BITARTRATE
  12. ZOFRAN [Concomitant]
     Active Substance: ONDANSETRON HYDROCHLORIDE
  13. COLACE [Concomitant]
     Active Substance: DOCUSATE SODIUM
  14. EPOGEN [Concomitant]
     Active Substance: ERYTHROPOIETIN
  15. COMPAZINE [Concomitant]
     Active Substance: PROCHLORPERAZINE MALEATE
  16. MIRALAX [Concomitant]
     Active Substance: POLYETHYLENE GLYCOL 3350
  17. LISINOPRIL. [Concomitant]
     Active Substance: LISINOPRIL
  18. OPDIVO [Concomitant]
     Active Substance: NIVOLUMAB
  19. LENVIMA [Suspect]
     Active Substance: LENVATINIB
     Route: 048
     Dates: end: 202006

REACTIONS (1)
  - Cerebrovascular accident [Unknown]

NARRATIVE: CASE EVENT DATE: 202006
